FAERS Safety Report 6505970-3 (Version None)
Quarter: 2009Q4

REPORT INFORMATION
  Report Type: 
  Country: None (occurrence: None)
  Receive Date: 20091210
  Receipt Date: 20081106
  Transmission Date: 20100525
  Serious: Yes (Life-Threatening, Hospitalization)
  Sender: FDA-Public Use
  Company Number: 2008-186433-NL

PATIENT
  Age: 21 Year
  Sex: Female
  Weight: 85.3 kg

DRUGS (4)
  1. NUVARING [Suspect]
     Indication: CONTRACEPTION
     Dates: start: 20070101, end: 20080801
  2. TYLENOL-500 [Concomitant]
  3. CLARITIN-D [Concomitant]
  4. FLONASE [Concomitant]

REACTIONS (1)
  - SUPERIOR SAGITTAL SINUS THROMBOSIS [None]
